FAERS Safety Report 5574076-2 (Version None)
Quarter: 2007Q4

REPORT INFORMATION
  Report Type: 
  Country: None (occurrence: None)
  Receive Date: 20071221
  Receipt Date: 20071205
  Transmission Date: 20080405
  Serious: Yes (Hospitalization)
  Sender: FDA-Public Use
  Company Number: DSA_30985_2007

PATIENT
  Age: 90 Year
  Sex: Female

DRUGS (3)
  1. ENALAPRIL MALEATE [Suspect]
     Indication: HYPERTENSION
     Dosage: (10 MG QD ORAL)
     Route: 048
     Dates: start: 20070101
  2. INDERAL [Suspect]
     Dosage: (10 MG QD ORAL)
     Route: 048
     Dates: start: 20070101, end: 20070916
  3. EUTIROX /00068001/ [Concomitant]

REACTIONS (2)
  - BUNDLE BRANCH BLOCK LEFT [None]
  - SYNCOPE [None]
